FAERS Safety Report 26116742 (Version 1)
Quarter: 2025Q4

REPORT INFORMATION
  Report Type: Spontaneous
  Country: US (occurrence: US)
  Receive Date: 20251203
  Receipt Date: 20251203
  Transmission Date: 20260117
  Serious: Yes (Death, Hospitalization)
  Sender: MYLAN
  Company Number: US-MYLANLABS-2025M1102854

PATIENT
  Age: 72 Year
  Sex: Male

DRUGS (2)
  1. CLOZAPINE [Suspect]
     Active Substance: CLOZAPINE
     Indication: Schizophrenia
     Dosage: UNK
  2. CLOZAPINE [Suspect]
     Active Substance: CLOZAPINE
     Dosage: UNK (REDUCED DOSE OF CLOZAPINE TO HALF)

REACTIONS (5)
  - Acute abdomen [Fatal]
  - Small intestinal obstruction [Fatal]
  - Gastrointestinal necrosis [Fatal]
  - Gastrointestinal perforation [Fatal]
  - Gastrointestinal haemorrhage [Fatal]
